FAERS Safety Report 10250363 (Version 3)
Quarter: 2014Q2

REPORT INFORMATION
  Report Type: Spontaneous
  Country: JP (occurrence: JP)
  Receive Date: 20140620
  Receipt Date: 20140625
  Transmission Date: 20141212
  Serious: Yes (Other)
  Sender: FDA-Public Use
  Company Number: JP-UCBSA-2014001397

PATIENT
  Age: 85 Year
  Sex: Male

DRUGS (2)
  1. KEPPRA [Suspect]
     Dosage: 250 MG, 2X/DAY (BID)
     Route: 048
  2. DEPAKENE-R [Concomitant]
     Dosage: 500 MG, ONCE DAILY (QD)
     Route: 048

REACTIONS (2)
  - Atrial fibrillation [Recovered/Resolved]
  - Dehydration [Recovered/Resolved]
